FAERS Safety Report 10029552 (Version 1)
Quarter: 2014Q1

REPORT INFORMATION
  Report Type: Spontaneous
  Country: US (occurrence: None)
  Receive Date: 20140320
  Receipt Date: 20140320
  Transmission Date: 20141002
  Serious: No
  Sender: FDA-Public Use
  Company Number: None

PATIENT
  Age: 70 Year
  Sex: Male
  Weight: 104.33 kg

DRUGS (2)
  1. PRAVASTATIN SODIUM [Suspect]
     Indication: BLOOD CHOLESTEROL INCREASED
     Dosage: 1 TAB
     Route: 048
     Dates: start: 20140312, end: 20140314
  2. SIMVASTATIN [Suspect]
     Indication: BLOOD CHOLESTEROL INCREASED
     Dosage: 1 TAB
     Route: 048
     Dates: start: 20110222, end: 20110422

REACTIONS (4)
  - Urinary incontinence [None]
  - Muscular weakness [None]
  - Diarrhoea [None]
  - Malaise [None]
